FAERS Safety Report 5264429-4 (Version None)
Quarter: 2007Q1

REPORT INFORMATION
  Report Type: 
  Country: None (occurrence: None)
  Receive Date: 20070309
  Receipt Date: 20070228
  Transmission Date: 20070707
  Serious: Yes (Death, Hospitalization)
  Sender: FDA-Public Use
  Company Number: 2007-00499

PATIENT
  Age: 65 Year
  Sex: Female
  Weight: 41.3 kg

DRUGS (2)
  1. VELCADE [Suspect]
     Indication: MULTIPLE MYELOMA
     Dates: start: 20060501
  2. DEXAMETHASONE [Suspect]
     Indication: MULTIPLE MYELOMA

REACTIONS (3)
  - ASTHENIA [None]
  - PAIN [None]
  - TRANSFUSION [None]
